FAERS Safety Report 4782690-7 (Version None)
Quarter: 2005Q3

REPORT INFORMATION
  Report Type: 
  Country: None (occurrence: None)
  Receive Date: 20050929
  Receipt Date: 20050722
  Transmission Date: 20060218
  Serious: No
  Sender: FDA-Public Use
  Company Number: 411917

PATIENT
  Age: 64 Year
  Sex: Female

DRUGS (3)
  1. COREG [Suspect]
     Indication: HYPERTENSION
     Dosage: 3.125MG TWICE PER DAY
     Route: 048
  2. DIOVAN [Concomitant]
  3. SYNTHROID [Concomitant]

REACTIONS (5)
  - HEART RATE INCREASED [None]
  - MYALGIA [None]
  - PALPITATIONS [None]
  - PRURITUS [None]
  - SKIN LESION [None]
